FAERS Safety Report 8415715-8 (Version None)
Quarter: 2012Q2

REPORT INFORMATION
  Report Type: 
  Country: None (occurrence: None)
  Receive Date: 20120530
  Receipt Date: 20120518
  Transmission Date: 20120825
  Serious: Yes (Hospitalization)
  Sender: FDA-Public Use
  Company Number: AUR-APL-2012-02390

PATIENT
  Age: 52 Year

DRUGS (1)
  1. SIMVASTATIN [Suspect]
     Indication: PRODUCT USED FOR UNKNOWN INDICATION

REACTIONS (12)
  - COMPARTMENT SYNDROME [None]
  - MENTAL STATUS CHANGES [None]
  - PROCEDURAL PAIN [None]
  - LIVER FUNCTION TEST ABNORMAL [None]
  - SEPSIS [None]
  - ERYTHEMA [None]
  - TOXICITY TO VARIOUS AGENTS [None]
  - RENAL FAILURE [None]
  - OEDEMA [None]
  - HYPERKALAEMIA [None]
  - PAIN [None]
  - MUSCULOSKELETAL DISORDER [None]
